FAERS Safety Report 8682323 (Version 3)
Quarter: 2012Q4

REPORT INFORMATION
  Report Type: Report from Study
  Country: JP (occurrence: JP)
  Receive Date: 20120725
  Receipt Date: 20120828
  Transmission Date: 20130627
  Serious: Yes (Death)
  Sender: FDA-Public Use
  Company Number: JP-PFIZER INC-2012174345

PATIENT
  Age: 72 Year
  Sex: Male
  Weight: 49 kg

DRUGS (7)
  1. TEMSIROLIMUS [Suspect]
     Indication: METASTATIC RENAL CELL CARCINOMA
     Dosage: 25 mg, UNK
     Route: 042
     Dates: start: 20111031
  2. TEMSIROLIMUS [Suspect]
     Dosage: 25 mg, UNK
     Route: 042
     Dates: start: 20111107
  3. TEMSIROLIMUS [Suspect]
     Dosage: 25 mg, UNK
     Route: 042
     Dates: start: 20111114
  4. TEMSIROLIMUS [Suspect]
     Dosage: 25 mg, UNK
     Route: 042
     Dates: start: 20111122
  5. TEMSIROLIMUS [Suspect]
     Dosage: 25 mg, UNK
     Route: 042
     Dates: start: 20111206, end: 20120124
  6. TEMSIROLIMUS [Suspect]
     Dosage: 25 mg, weekly
     Dates: start: 20120207, end: 20120605
  7. POLARAMINE [Concomitant]
     Indication: PROPHYLAXIS
     Dosage: 5 mg, 1x/day
     Route: 042

REACTIONS (2)
  - Disease progression [Fatal]
  - Metastatic renal cell carcinoma [Fatal]
